FAERS Safety Report 11528821 (Version 2)
Quarter: 2015Q4

REPORT INFORMATION
  Report Type: Spontaneous
  Country: US (occurrence: US)
  Receive Date: 20150921
  Receipt Date: 20151014
  Transmission Date: 20160304
  Serious: No
  Sender: FDA-Public Use
  Company Number: US-PFIZER INC-2015300907

PATIENT

DRUGS (5)
  1. SPIRONOLACTONE. [Suspect]
     Active Substance: SPIRONOLACTONE
     Dosage: 50 MG, UNK
  2. EPLERENONE. [Interacting]
     Active Substance: EPLERENONE
     Dosage: 25 MG, UNK
     Dates: end: 201508
  3. EPLERENONE. [Interacting]
     Active Substance: EPLERENONE
     Dosage: UNK
     Dates: start: 201509
  4. EPLERENONE. [Interacting]
     Active Substance: EPLERENONE
     Dosage: UNK
     Dates: start: 201309
  5. EPLERENONE. [Interacting]
     Active Substance: EPLERENONE
     Dosage: 25 MG, UNK

REACTIONS (2)
  - Abdominal pain upper [Unknown]
  - Labelled drug-drug interaction medication error [Unknown]
